FAERS Safety Report 4889942-0 (Version None)
Quarter: 2006Q1

REPORT INFORMATION
  Report Type: 
  Country: None (occurrence: None)
  Receive Date: 20060123
  Receipt Date: 20060123
  Transmission Date: 20060701
  Serious: Yes (Hospitalization, Other)
  Sender: FDA-Public Use
  Company Number: None

PATIENT
  Age: 77 Year
  Sex: Male
  Weight: 73.4827 kg

DRUGS (1)
  1. FLUOXETINE HCL [Suspect]
     Indication: DEPRESSION
     Dosage: 10MG ODD DAYS PO
     Route: 048
     Dates: start: 20060112, end: 20060119

REACTIONS (3)
  - CARDIAC FIBRILLATION [None]
  - HEART RATE INCREASED [None]
  - PALPITATIONS [None]
